FAERS Safety Report 7748376-1 (Version None)
Quarter: 2011Q3

REPORT INFORMATION
  Report Type: 
  Country: None (occurrence: None)
  Receive Date: 20110913
  Receipt Date: 20110902
  Transmission Date: 20111222
  Serious: Yes (Hospitalization)
  Sender: FDA-Public Use
  Company Number: GB-MERCK-1108GBR00083

PATIENT
  Age: 75 Year
  Sex: Male

DRUGS (2)
  1. ZOCOR [Suspect]
     Indication: PROPHYLAXIS
     Route: 065
  2. OMEPRAZOLE [Concomitant]
     Route: 065

REACTIONS (1)
  - BRADYCARDIA [None]
